FAERS Safety Report 22130297 (Version 1)
Quarter: 2023Q1

REPORT INFORMATION
  Report Type: Spontaneous
  Country: FR (occurrence: FR)
  Receive Date: 20230323
  Receipt Date: 20230323
  Transmission Date: 20230418
  Serious: Yes (Life-Threatening, Hospitalization, Other)
  Sender: FDA-Public Use
  Company Number: FR-Accord-303416

PATIENT
  Age: 76 Year
  Sex: Male

DRUGS (3)
  1. PEMETREXED [Suspect]
     Active Substance: PEMETREXED
     Indication: Lung adenocarcinoma
     Dosage: UNK, PEMETREXED AS THIRD-LINE TREATMENT WITH SUPPLEMENTAL VITAMIN B12 AND FOLIC ACID
     Route: 065
     Dates: start: 2019
  2. FOLIC ACID [Concomitant]
     Active Substance: FOLIC ACID
     Indication: Lung adenocarcinoma
     Dosage: UNK
     Route: 065
  3. VITAMIN B12 [Concomitant]
     Active Substance: CYANOCOBALAMIN
     Indication: Lung adenocarcinoma
     Dosage: UNK
     Route: 065

REACTIONS (3)
  - Interstitial lung disease [Recovered/Resolved]
  - Leukocytosis [Recovered/Resolved]
  - Malignant neoplasm progression [Not Recovered/Not Resolved]

NARRATIVE: CASE EVENT DATE: 20191201
